FAERS Safety Report 5044441-0 (Version None)
Quarter: 2006Q3

REPORT INFORMATION
  Report Type: 
  Country: None (occurrence: None)
  Receive Date: 20060706
  Receipt Date: 20050509
  Transmission Date: 20061208
  Serious: Yes (Other)
  Sender: FDA-Public Use
  Company Number: US-GLAXOSMITHKLINE-A0558625A

PATIENT
  Age: 64 Year
  Sex: Male

DRUGS (6)
  1. PAXIL CR [Suspect]
     Indication: ANXIETY
     Dosage: 12.5MG UNKNOWN
     Route: 048
     Dates: start: 20040101
  2. PAXIL [Suspect]
     Indication: ANXIETY
     Dosage: 10MG UNKNOWN
     Route: 048
     Dates: start: 20040804
  3. BEXTRA [Concomitant]
  4. NEXIUM [Concomitant]
  5. KLONOPIN [Concomitant]
  6. COREG [Concomitant]

REACTIONS (18)
  - AGGRESSION [None]
  - BALANCE DISORDER [None]
  - COMPUTERISED TOMOGRAM ABNORMAL [None]
  - DEPRESSION [None]
  - DRUG WITHDRAWAL SYNDROME [None]
  - ENCEPHALOPATHY [None]
  - IRRITABILITY [None]
  - MEMORY IMPAIRMENT [None]
  - MENTAL DISORDER [None]
  - MICROANGIOPATHY [None]
  - MOOD SWINGS [None]
  - MUSCULAR WEAKNESS [None]
  - NAUSEA [None]
  - NEUROLOGICAL SYMPTOM [None]
  - PARAESTHESIA [None]
  - PERSONALITY CHANGE [None]
  - SENSATION OF BLOOD FLOW [None]
  - SENSORY DISTURBANCE [None]
